FAERS Safety Report 22657164 (Version 1)
Quarter: 2023Q2

REPORT INFORMATION
  Report Type: Spontaneous
  Country: US (occurrence: US)
  Receive Date: 20230630
  Receipt Date: 20230630
  Transmission Date: 20230721
  Serious: No
  Sender: FDA-Public Use
  Company Number: US-GSK-US2023086688

PATIENT
  Age: 66 Year
  Sex: Female
  Weight: 70.31 kg

DRUGS (2)
  1. NUCALA [Suspect]
     Active Substance: MEPOLIZUMAB
     Indication: Bronchitis
     Dosage: UNK, INJECTION IN HEALTH CARE PROFESSIONAL^S OFFICE
  2. PREDNISONE [Concomitant]
     Active Substance: PREDNISONE
     Indication: Inflammation
     Dosage: UNK, TAKE 2 A DAY FOR ONE WEEK AND ONE A DAY FOR SECOND WEEK
     Dates: start: 20230619

REACTIONS (3)
  - Oropharyngeal pain [Not Recovered/Not Resolved]
  - Cough [Not Recovered/Not Resolved]
  - Product use in unapproved indication [Unknown]

NARRATIVE: CASE EVENT DATE: 20230617
